FAERS Safety Report 6920821-0 (Version None)
Quarter: 2010Q3

REPORT INFORMATION
  Report Type: 
  Country: None (occurrence: None)
  Receive Date: 20100804
  Receipt Date: 20091116
  Transmission Date: 20110219
  Serious: No
  Sender: FDA-Public Use
  Company Number: 2009-4730

PATIENT
  Age: 43 Year
  Sex: Female
  Weight: 100 kg

DRUGS (10)
  1. SOMATULINE DEPOT [Suspect]
     Indication: NEUROENDOCRINE TUMOUR
     Dosage: 60 MG (60 MG, ONCE), SUBCUTANEOUS
     Route: 058
     Dates: start: 20091112, end: 20091112
  2. DILTIAZEM [Concomitant]
  3. POTASSIUM (POTASSIUM) [Concomitant]
  4. SINGULAIR [Concomitant]
  5. ALLEGRA [Concomitant]
  6. CHLORTHALIDONE [Concomitant]
  7. METOPROLOL SUCCINATE [Concomitant]
  8. PROTONIX [Concomitant]
  9. FLONASE [Concomitant]
  10. SANDOSTATIN LAR [Concomitant]

REACTIONS (10)
  - ABDOMINAL DISTENSION [None]
  - ABDOMINAL PAIN [None]
  - FEELING HOT [None]
  - FLATULENCE [None]
  - HEADACHE [None]
  - HOT FLUSH [None]
  - INFLUENZA LIKE ILLNESS [None]
  - MOOD SWINGS [None]
  - NAUSEA [None]
  - TEMPERATURE INTOLERANCE [None]
